FAERS Safety Report 6551812-X (Version None)
Quarter: 2010Q1

REPORT INFORMATION
  Report Type: 
  Country: None (occurrence: None)
  Receive Date: 20100126
  Receipt Date: 20100115
  Transmission Date: 20100710
  Serious: Yes (Death)
  Sender: FDA-Public Use
  Company Number: US-JNJFOC-20100106268

PATIENT
  Age: 42 Year
  Sex: Male

DRUGS (2)
  1. ACETAMINOPHEN [Suspect]
     Route: 048
  2. ACETAMINOPHEN [Suspect]
     Indication: PAIN
     Route: 048

REACTIONS (15)
  - ACIDOSIS [None]
  - ACUTE HEPATIC FAILURE [None]
  - ATAXIA [None]
  - BRADYCARDIA [None]
  - CARDIAC ARREST [None]
  - DEHYDRATION [None]
  - DRUG TOXICITY [None]
  - ENCEPHALOPATHY [None]
  - HYPOKALAEMIA [None]
  - HYPOTENSION [None]
  - INTENTIONAL DRUG MISUSE [None]
  - PANCYTOPENIA [None]
  - RENAL FAILURE [None]
  - TREMOR [None]
  - UNRESPONSIVE TO STIMULI [None]
